FAERS Safety Report 16843713 (Version 2)
Quarter: 2020Q3

REPORT INFORMATION
  Report Type: Spontaneous
  Country: US (occurrence: US)
  Receive Date: 20190924
  Receipt Date: 20200831
  Transmission Date: 20201102
  Serious: Yes (Other)
  Sender: FDA-Public Use
  Company Number: US-GILEAD-2019-0429828

PATIENT
  Age: 60 Year
  Sex: Male
  Weight: 131.52 kg

DRUGS (20)
  1. KALETRA [Concomitant]
     Active Substance: LOPINAVIR\RITONAVIR
  2. LISINOPRIL. [Concomitant]
     Active Substance: LISINOPRIL
  3. EPZICOM [Concomitant]
     Active Substance: ABACAVIR SULFATE\LAMIVUDINE
  4. ALLOPURINOL. [Concomitant]
     Active Substance: ALLOPURINOL
  5. ATENOLOL. [Concomitant]
     Active Substance: ATENOLOL
  6. VALSARTAN. [Concomitant]
     Active Substance: VALSARTAN
  7. VIREAD [Suspect]
     Active Substance: TENOFOVIR DISOPROXIL FUMARATE
     Indication: HIV INFECTION
     Dosage: UNK
     Route: 048
     Dates: start: 20071227, end: 20151201
  8. ZIAGEN [Concomitant]
     Active Substance: ABACAVIR SULFATE
  9. POTASSIUM [Concomitant]
     Active Substance: POTASSIUM
  10. TRIUMEQ [Concomitant]
     Active Substance: ABACAVIR SULFATE\DOLUTEGRAVIR SODIUM\LAMIVUDINE
  11. LEVOTHYROXINE. [Concomitant]
     Active Substance: LEVOTHYROXINE
  12. METHIMAZOLE. [Concomitant]
     Active Substance: METHIMAZOLE
  13. RANITIDINE. [Concomitant]
     Active Substance: RANITIDINE
  14. OLMESARTAN MEDOXOMIL. [Concomitant]
     Active Substance: OLMESARTAN MEDOXOMIL
  15. ATORVASTATIN [Concomitant]
     Active Substance: ATORVASTATIN
  16. DIAZEPAM. [Concomitant]
     Active Substance: DIAZEPAM
  17. NATPARA (PARATHYROID HORMONE) [Concomitant]
     Active Substance: PARATHYROID HORMONE
  18. FUROSEMIDE. [Concomitant]
     Active Substance: FUROSEMIDE
  19. ISENTRESS [Concomitant]
     Active Substance: RALTEGRAVIR POTASSIUM
  20. OMEPRAZOLE. [Concomitant]
     Active Substance: OMEPRAZOLE

REACTIONS (8)
  - Loss of personal independence in daily activities [Not Recovered/Not Resolved]
  - Anhedonia [Not Recovered/Not Resolved]
  - Chronic kidney disease [Not Recovered/Not Resolved]
  - Pain [Not Recovered/Not Resolved]
  - Emotional distress [Not Recovered/Not Resolved]
  - Anxiety [Not Recovered/Not Resolved]
  - Acute kidney injury [Not Recovered/Not Resolved]
  - Fatigue [Not Recovered/Not Resolved]

NARRATIVE: CASE EVENT DATE: 20151203
